FAERS Safety Report 7629074-1 (Version None)
Quarter: 2011Q3

REPORT INFORMATION
  Report Type: 
  Country: None (occurrence: None)
  Receive Date: 20110722
  Receipt Date: 20110722
  Transmission Date: 20111222
  Serious: Yes (Hospitalization)
  Sender: FDA-Public Use
  Company Number: None

PATIENT
  Age: 43 Year
  Sex: Male
  Weight: 74.8 kg

DRUGS (1)
  1. PROTONIX [Suspect]
     Indication: PROPHYLAXIS AGAINST GASTROINTESTINAL ULCER
     Dosage: 40 MG
     Route: 042
     Dates: start: 20110414, end: 20110422

REACTIONS (6)
  - INFLUENZA [None]
  - APPENDICITIS PERFORATED [None]
  - RESPIRATORY FAILURE [None]
  - PNEUMONIA [None]
  - RHABDOMYOLYSIS [None]
  - RENAL IMPAIRMENT [None]
